FAERS Safety Report 5426762-2 (Version None)
Quarter: 2007Q3

REPORT INFORMATION
  Report Type: 
  Country: None (occurrence: None)
  Receive Date: 20070827
  Receipt Date: 20070815
  Transmission Date: 20080115
  Serious: Yes (Other)
  Sender: FDA-Public Use
  Company Number: US-PFIZER INC-2007067869

PATIENT
  Sex: Female

DRUGS (1)
  1. BEXTRA [Suspect]

REACTIONS (5)
  - ANXIETY [None]
  - CEREBROVASCULAR ACCIDENT [None]
  - DEPRESSION [None]
  - INCONTINENCE [None]
  - VISUAL DISTURBANCE [None]
